FAERS Safety Report 25983813 (Version 3)
Quarter: 2025Q4

REPORT INFORMATION
  Report Type: Spontaneous
  Country: JP (occurrence: JP)
  Receive Date: 20251031
  Receipt Date: 20251224
  Transmission Date: 20260118
  Serious: Yes (Other)
  Sender: RADIUS PHARM
  Company Number: JP-RADIUS HEALTH INC.-JP-RADIUS-25056054

PATIENT
  Age: 88 Year
  Sex: Male

DRUGS (3)
  1. ABALOPARATIDE [Suspect]
     Active Substance: ABALOPARATIDE
     Indication: Osteoporosis
     Dosage: 80 MICROGRAM, QD
     Route: 058
     Dates: start: 20250620, end: 20251003
  2. MIROGABALIN BESYLATE [Concomitant]
     Active Substance: MIROGABALIN BESYLATE
     Indication: Spinal stenosis
     Dosage: 10 MILLIGRAM, QD
     Route: 048
     Dates: start: 20250530, end: 20250717
  3. SHAKUYAKUKANZOTO [Concomitant]
     Active Substance: HERBALS
     Indication: Spinal stenosis
     Dosage: 25 MILLIGRAM, QD
     Route: 048
     Dates: start: 20250530, end: 20250717

REACTIONS (1)
  - Renal impairment [Recovering/Resolving]

NARRATIVE: CASE EVENT DATE: 20250718
